FAERS Safety Report 4676648-6 (Version None)
Quarter: 2005Q2

REPORT INFORMATION
  Report Type: 
  Country: None (occurrence: None)
  Receive Date: 20050527
  Receipt Date: 20050520
  Transmission Date: 20051028
  Serious: Yes (Other)
  Sender: FDA-Public Use
  Company Number: PHEH2005US05805

PATIENT
  Age: 50 Year
  Sex: Male

DRUGS (2)
  1. ZOMETA [Suspect]
     Indication: PROSTATE CANCER METASTATIC
     Dosage: 4MG Q3WK
     Dates: start: 20050201, end: 20050428
  2. TAXOTERE [Concomitant]

REACTIONS (2)
  - ASEPTIC NECROSIS BONE [None]
  - PAIN IN JAW [None]
